FAERS Safety Report 17261267 (Version 3)
Quarter: 2020Q1

REPORT INFORMATION
  Report Type: Report from Study
  Country: US (occurrence: US)
  Receive Date: 20200113
  Receipt Date: 20200206
  Transmission Date: 20200409
  Serious: Yes (Hospitalization, Other)
  Sender: FDA-Public Use
  Company Number: US-GILEAD-2020-0446144

PATIENT
  Age: 53 Year
  Sex: Female

DRUGS (6)
  1. SPIRONOLACTONE. [Concomitant]
     Active Substance: SPIRONOLACTONE
  2. DILTIAZEM. [Concomitant]
     Active Substance: DILTIAZEM
  3. AMBRISENTAN [Suspect]
     Active Substance: AMBRISENTAN
     Indication: PRODUCT USED FOR UNKNOWN INDICATION
     Dosage: 5 MG, QD
     Route: 065
     Dates: start: 20200120
  4. AMBRISENTAN [Suspect]
     Active Substance: AMBRISENTAN
     Dosage: 10 MG, QD
     Route: 065
  5. SILDENAFIL. [Concomitant]
     Active Substance: SILDENAFIL
  6. UPTRAVI [Concomitant]
     Active Substance: SELEXIPAG

REACTIONS (1)
  - Cardiac failure [Unknown]
